FAERS Safety Report 5406382-6 (Version None)
Quarter: 2007Q3

REPORT INFORMATION
  Report Type: 
  Country: None (occurrence: None)
  Receive Date: 20070713
  Receipt Date: 20070518
  Transmission Date: 20080115
  Serious: Yes (Hospitalization)
  Sender: FDA-Public Use
  Company Number: US-JNJFOC-20060806213

PATIENT
  Age: 26 Year
  Sex: Female
  Weight: 73.9363 kg

DRUGS (10)
  1. ORTHO EVRA [Suspect]
     Indication: CONTRACEPTION
     Dosage: TRANSDERMAL
     Route: 062
     Dates: start: 20031201, end: 20040810
  2. ORTHO EVRA [Suspect]
     Indication: TURNER'S SYNDROME
     Dosage: TRANSDERMAL
     Route: 062
     Dates: start: 20031201, end: 20040810
  3. SUPPLEMENTS (VITAMIN NOS) [Concomitant]
  4. ESTROGEN (ESTROGEN NOS) [Concomitant]
  5. PROGESTERONE [Concomitant]
  6. ALBUTEROL [Concomitant]
  7. TRINALIN [Concomitant]
  8. PENLAC (ALL OTHER THERAPEUTIC PRODUCTS) [Concomitant]
  9. CORTISPORIN (ALCOMYXINE) [Concomitant]
  10. SWIM EAR (ALL OTHER THERAPEUTIC PRODUCTS) [Concomitant]

REACTIONS (1)
  - INTRACRANIAL VENOUS SINUS THROMBOSIS [None]
